FAERS Safety Report 20087061 (Version 3)
Quarter: 2021Q4

REPORT INFORMATION
  Report Type: Report from Study
  Country: AU (occurrence: None)
  Receive Date: 20211118
  Receipt Date: 20211124
  Transmission Date: 20220303
  Serious: Yes (Other)
  Sender: FDA-Public Use
  Company Number: 2021A804622

PATIENT
  Age: 58 Year
  Sex: Female

DRUGS (3)
  1. BYETTA [Interacting]
     Active Substance: EXENATIDE
     Indication: Type 2 diabetes mellitus
     Dosage: 5.0MG UNKNOWN
     Route: 065
     Dates: start: 20210824
  2. BYETTA [Interacting]
     Active Substance: EXENATIDE
     Indication: Type 2 diabetes mellitus
     Dosage: 10.0MG UNKNOWN
     Route: 065
     Dates: start: 20210824
  3. METFORMIN [Suspect]
     Active Substance: METFORMIN HYDROCHLORIDE
     Indication: Diabetes mellitus
     Route: 065
     Dates: start: 20210111

REACTIONS (7)
  - Drug interaction [Unknown]
  - Dyslipidaemia [Unknown]
  - Hypertension [Unknown]
  - Body mass index abnormal [Unknown]
  - Renal impairment [Unknown]
  - Drug ineffective [Unknown]
  - Off label use [Unknown]
